FAERS Safety Report 6555198-6 (Version None)
Quarter: 2010Q1

REPORT INFORMATION
  Report Type: 
  Country: None (occurrence: None)
  Receive Date: 20100128
  Receipt Date: 20091126
  Transmission Date: 20100710
  Serious: Yes (Other)
  Sender: FDA-Public Use
  Company Number: GB-PFIZER INC-2009296143

PATIENT
  Age: 51 Year
  Sex: Female

DRUGS (8)
  1. LATANOPROST [Suspect]
     Indication: GLAUCOMA
     Route: 061
  2. NIFEDIPINE [Concomitant]
  3. ACETYLSALICYLIC ACID [Concomitant]
  4. PROPRANOLOL [Concomitant]
  5. ATORVASTATIN [Concomitant]
  6. CO-AMILOFRUSE [Concomitant]
  7. FLUOXETINE [Concomitant]
  8. DORZOLAMIDE [Concomitant]

REACTIONS (1)
  - COUGH [None]
